FAERS Safety Report 15203064 (Version 1)
Quarter: 2018Q3

REPORT INFORMATION
  Report Type: Report from Study
  Country: HU (occurrence: HU)
  Receive Date: 20180726
  Receipt Date: 20180726
  Transmission Date: 20181010
  Serious: Yes (Hospitalization)
  Sender: FDA-Public Use
  Company Number: HU-SA-2018SA107671

PATIENT
  Age: 46 Year
  Sex: Female

DRUGS (8)
  1. BLINDED INSULIN ASPART [Suspect]
     Active Substance: INSULIN ASPART
     Indication: DIABETES MELLITUS
     Dosage: UNK UNK,AC
     Route: 058
     Dates: start: 20171227
  2. BLINDED SAR341402 [Suspect]
     Active Substance: INSULIN ASPART
     Indication: DIABETES MELLITUS
     Dosage: UNK UNK,AC
     Route: 058
     Dates: start: 20171227
  3. INSULIN GLARGINE [Suspect]
     Active Substance: INSULIN GLARGINE
     Indication: DIABETES MELLITUS
     Dosage: UNK UNK,QD
     Route: 058
     Dates: start: 20171227
  4. TOBREX [Concomitant]
     Active Substance: TOBRAMYCIN
     Dosage: UNK UNK,UNK
     Route: 047
     Dates: start: 20180306, end: 20180420
  5. METRONIDAZOLE. [Concomitant]
     Active Substance: METRONIDAZOLE
     Dosage: UNK UNK,UNK
     Route: 067
     Dates: start: 20180309, end: 20180319
  6. BLINDED SAR341402 [Suspect]
     Active Substance: INSULIN ASPART
     Indication: DIABETES MELLITUS
     Dosage: UNK UNK,AC
     Route: 058
     Dates: start: 20171227
  7. BLINDED JP_INSULIN ASPART [Suspect]
     Active Substance: INSULIN ASPART
     Indication: DIABETES MELLITUS
     Dosage: UNK UNK,AC
     Route: 058
     Dates: start: 20171227
  8. BLINDED NO STUDY DRUG GIVEN [Suspect]
     Active Substance: INVESTIGATIONAL PRODUCT
     Indication: DIABETES MELLITUS
     Dosage: UNK UNK,AC
     Route: 058
     Dates: start: 20171227

REACTIONS (1)
  - Diabetic ketoacidosis [Recovered/Resolved]

NARRATIVE: CASE EVENT DATE: 20180330
